FAERS Safety Report 19232228 (Version 1)
Quarter: 2021Q2

REPORT INFORMATION
  Report Type: Other
  Country: US (occurrence: US)
  Receive Date: 20210507
  Receipt Date: 20210507
  Transmission Date: 20210717
  Serious: Yes (Death)
  Sender: FDA-Public Use
  Company Number: US-ROCHE-2823940

PATIENT
  Sex: Female

DRUGS (25)
  1. ACTEMRA [Suspect]
     Active Substance: TOCILIZUMAB
  2. ACTEMRA [Suspect]
     Active Substance: TOCILIZUMAB
  3. TYLENOL EXTRA STRENGTH [Concomitant]
     Active Substance: ACETAMINOPHEN
     Indication: PAIN
     Dosage: DO NOT EXCEED 3,250 MG IN 24 HOURS PERIOD
     Route: 048
  4. LASIX [Concomitant]
     Active Substance: FUROSEMIDE
     Route: 048
  5. ACTEMRA [Suspect]
     Active Substance: TOCILIZUMAB
     Indication: RHEUMATOID ARTHRITIS
     Dosage: INJECT 162MG (0.9ML) SUBCUTANEOUSLY EVERY WEEK
     Route: 058
  6. LIPITOR [Concomitant]
     Active Substance: ATORVASTATIN CALCIUM
     Route: 048
  7. VITAMIN D3 [Concomitant]
     Active Substance: CHOLECALCIFEROL
     Route: 048
  8. KLOR?CON [Concomitant]
     Active Substance: POTASSIUM CHLORIDE
     Route: 048
     Dates: start: 20200522
  9. ANORO ELLIPTA [Concomitant]
     Active Substance: UMECLIDINIUM BROMIDE\VILANTEROL TRIFENATATE
     Dosage: 62.5?25 MCG/ACTUATION DSDV POWDER FOR INHALATION
     Route: 055
  10. VALTREX [Concomitant]
     Active Substance: VALACYCLOVIR HYDROCHLORIDE
     Indication: ORAL HERPES
     Route: 048
     Dates: start: 20180412
  11. ACTEMRA [Suspect]
     Active Substance: TOCILIZUMAB
  12. ALBUTEROL. [Concomitant]
     Active Substance: ALBUTEROL
     Indication: WHEEZING
     Dosage: 2 PUFFS ONCE IN 6 HOURS AS NEEDED
     Route: 055
  13. MYRBETRIQ [Concomitant]
     Active Substance: MIRABEGRON
     Route: 048
  14. MYCOSTATIN [Concomitant]
     Active Substance: NYSTATIN
     Dosage: APPLY TO SKIN FOLD TWO TO FOUR TIMES A WEEK
     Route: 061
     Dates: start: 20191231
  15. ACTEMRA [Suspect]
     Active Substance: TOCILIZUMAB
     Route: 058
     Dates: start: 20200701, end: 20200729
  16. VITAMIN B12 [Concomitant]
     Active Substance: CYANOCOBALAMIN
     Route: 048
  17. NEUROTIN [GABAPENTIN] [Concomitant]
     Active Substance: GABAPENTIN
     Dosage: PATIENT TAKING DIFFERENTLY 600 MG BY MOUTH AT BEDTIME
     Dates: start: 20190906
  18. ACTEMRA [Suspect]
     Active Substance: TOCILIZUMAB
  19. FOLVITE [Concomitant]
     Active Substance: FOLIC ACID
     Route: 048
  20. SYNTHROID [Concomitant]
     Active Substance: LEVOTHYROXINE SODIUM
     Route: 048
     Dates: start: 20190930
  21. MYCOSTATIN [Concomitant]
     Active Substance: NYSTATIN
     Dosage: APPLY TOPICALLY TWICE DAILY. UNTIL CLEAR AND THEN FOR TWO MORE DAYS
     Route: 061
     Dates: start: 20191231
  22. ULTRAM [Concomitant]
     Active Substance: TRAMADOL HYDROCHLORIDE
     Route: 048
  23. NEUROTIN [GABAPENTIN] [Concomitant]
     Active Substance: GABAPENTIN
     Dates: start: 20191106
  24. PAXIL [Concomitant]
     Active Substance: PAROXETINE HYDROCHLORIDE
     Route: 048
  25. ACTEMRA [Concomitant]
     Active Substance: TOCILIZUMAB
     Dosage: 400 MG/20 ML
     Route: 042
     Dates: start: 20120401

REACTIONS (1)
  - Death [Fatal]
